FAERS Safety Report 7587374-8 (Version None)
Quarter: 2011Q3

REPORT INFORMATION
  Report Type: 
  Country: None (occurrence: None)
  Receive Date: 20110701
  Receipt Date: 20110627
  Transmission Date: 20111222
  Serious: Yes (Death)
  Sender: FDA-Public Use
  Company Number: AU-ASTRAZENECA-2011SE38617

PATIENT
  Age: 35 Year

DRUGS (8)
  1. FLUOXETINE HCL [Suspect]
  2. DELTA(9)-TETRAHYDROCANNABITOL [Suspect]
  3. DIAZEPAM [Suspect]
  4. BENZTROPINE MESYLATE [Suspect]
  5. QUETIAPINE [Suspect]
     Route: 048
  6. CODEINE [Suspect]
  7. METHADONE HCL [Suspect]
  8. NORDIAZEPAM [Suspect]

REACTIONS (3)
  - TOXICITY TO VARIOUS AGENTS [None]
  - ACCIDENTAL OVERDOSE [None]
  - RESPIRATORY DEPRESSION [None]
